FAERS Safety Report 4945137-3 (Version None)
Quarter: 2006Q1

REPORT INFORMATION
  Report Type: 
  Country: None (occurrence: None)
  Receive Date: 20060117
  Receipt Date: 20041206
  Transmission Date: 20060701
  Serious: Yes (Other)
  Sender: FDA-Public Use
  Company Number: A03200404138

PATIENT
  Age: 48 Year
  Sex: Female
  Weight: 64.4108 kg

DRUGS (17)
  1. PLAVIX [Suspect]
     Indication: ANGINA PECTORIS
     Dosage: ORAL
     Route: 048
     Dates: start: 19950301, end: 19950401
  2. LOSARTAN POTASSIUM [Concomitant]
  3. DIGOXIN [Concomitant]
  4. FUROSEMIDE [Concomitant]
  5. SERTRALINE HYDROCHLORIDE [Concomitant]
  6. GLYBURIDE 1.25MG+METFORMIN HCL 250MG [Concomitant]
  7. ESOMEPRAZOLE [Concomitant]
  8. ATORVASTATIN CALCIUM [Concomitant]
  9. PSYLLIUM HUSK [Concomitant]
  10. POTASSIUM CHLORIDE [Concomitant]
  11. VALPROATE SODIUM [Concomitant]
  12. MULTI-VITAMIN [Concomitant]
  13. VITAMIN B COMPLEX CAP [Concomitant]
  14. MAGNESIUM [Concomitant]
  15. VITAMIN E [Concomitant]
  16. BILBERRY [Concomitant]
  17. ACETYLSALICYLIC ACID SRT [Concomitant]

REACTIONS (2)
  - ANGINA PECTORIS [None]
  - CHEST PAIN [None]
